FAERS Safety Report 4350559-8 (Version None)
Quarter: 2004Q2

REPORT INFORMATION
  Report Type: 
  Country: None (occurrence: None)
  Receive Date: 20040427
  Receipt Date: 20040415
  Transmission Date: 20050107
  Serious: Yes (Death)
  Sender: FDA-Public Use
  Company Number: US-JNJFOC-20040403078

PATIENT
  Age: 21 Year
  Sex: Female

DRUGS (1)
  1. ORTHOCLONE OKT3 [Suspect]
     Indication: TRANSPLANT
     Dates: start: 20020501

REACTIONS (11)
  - CANDIDA SEPSIS [None]
  - CYTOMEGALOVIRUS ANTIGEN POSITIVE [None]
  - HAEMORRHAGE INTRACRANIAL [None]
  - INFECTION IN AN IMMUNOCOMPROMISED HOST [None]
  - LUNG INFECTION [None]
  - MICROSPORIDIA INFECTION [None]
  - MISMATCHED DONOR BONE MARROW TRANSPLANTATION THERAPY [None]
  - PNEUMONITIS [None]
  - POST PROCEDURAL COMPLICATION [None]
  - RESPIRATORY DISTRESS [None]
  - TOXOPLASMOSIS [None]
